FAERS Safety Report 6921067-2 (Version None)
Quarter: 2010Q3

REPORT INFORMATION
  Report Type: 
  Country: None (occurrence: None)
  Receive Date: 20100812
  Receipt Date: 20100804
  Transmission Date: 20110219
  Serious: Yes (Death)
  Sender: FDA-Public Use
  Company Number: CO-ROCHE-719018

PATIENT
  Sex: Female

DRUGS (1)
  1. AVASTIN [Suspect]
     Dosage: LAST INFUSION WAS ON 27 MAY 2010.
     Route: 042
     Dates: start: 20100219

REACTIONS (1)
  - DISEASE PROGRESSION [None]
